FAERS Safety Report 6257632-8 (Version None)
Quarter: 2009Q3

REPORT INFORMATION
  Report Type: 
  Country: None (occurrence: None)
  Receive Date: 20090706
  Receipt Date: 20090624
  Transmission Date: 20100115
  Serious: Yes (Hospitalization)
  Sender: FDA-Public Use
  Company Number: JP-SANOFI-SYNTHELABO-A01200906853

PATIENT
  Age: 26 Year
  Sex: Female

DRUGS (2)
  1. BONZOL [Suspect]
     Indication: APLASTIC ANAEMIA
     Dosage: UNK
     Route: 065
  2. CYCLOSPORINE [Concomitant]
     Indication: APLASTIC ANAEMIA
     Dosage: UNK
     Route: 065
     Dates: start: 19950101

REACTIONS (8)
  - BLOOD PRODUCT TRANSFUSION DEPENDENT [None]
  - BONE MARROW TRANSPLANT [None]
  - DEEP VEIN THROMBOSIS [None]
  - DISEASE PROGRESSION [None]
  - HEPATIC ADENOMA [None]
  - HEPATIC RUPTURE [None]
  - INTRA-ABDOMINAL HAEMORRHAGE [None]
  - PANCYTOPENIA [None]
